FAERS Safety Report 8434210-3 (Version None)
Quarter: 2012Q2

REPORT INFORMATION
  Report Type: 
  Country: None (occurrence: None)
  Receive Date: 20120613
  Receipt Date: 20120608
  Transmission Date: 20120825
  Serious: Yes (Hospitalization)
  Sender: FDA-Public Use
  Company Number: PHHY2012US049381

PATIENT
  Age: 28 Year
  Sex: Female

DRUGS (1)
  1. LEFLUNOMIDE [Suspect]
     Indication: RHEUMATOID ARTHRITIS
     Dosage: 20 MG, QD

REACTIONS (8)
  - OEDEMA PERIPHERAL [None]
  - DYSPNOEA AT REST [None]
  - JUGULAR VEIN DISTENSION [None]
  - TACHYPNOEA [None]
  - HEPATOJUGULAR REFLUX [None]
  - RIGHT VENTRICULAR HEAVE [None]
  - DYSPNOEA EXERTIONAL [None]
  - PULMONARY HYPERTENSION [None]
